FAERS Safety Report 7313874-1 (Version None)
Quarter: 2011Q1

REPORT INFORMATION
  Report Type: 
  Country: None (occurrence: None)
  Receive Date: 20110225
  Receipt Date: 20110215
  Transmission Date: 20110831
  Serious: Yes (Other)
  Sender: FDA-Public Use
  Company Number: IT-SANOFI-AVENTIS-2011SA010085

PATIENT
  Age: 76 Year
  Sex: Female

DRUGS (2)
  1. TRIAMCINOLONE ACETONIDE [Suspect]
     Route: 031
  2. TRIAMCINOLONE ACETONIDE [Suspect]
     Route: 031

REACTIONS (1)
  - RETINAL PIGMENT EPITHELIAL TEAR [None]
